FAERS Safety Report 5747484-4 (Version None)
Quarter: 2008Q2

REPORT INFORMATION
  Report Type: 
  Country: None (occurrence: None)
  Receive Date: 20080523
  Receipt Date: 20080516
  Transmission Date: 20081010
  Serious: Yes (Hospitalization)
  Sender: FDA-Public Use
  Company Number: FR-WYE-G01544608

PATIENT
  Sex: Male

DRUGS (3)
  1. ADVIL [Suspect]
     Indication: PYREXIA
     Dosage: 400 MG TOTAL DAILY
     Route: 048
     Dates: start: 20080325, end: 20080330
  2. TUSSIDORON [Concomitant]
     Route: 048
     Dates: start: 20080325, end: 20080330
  3. CARBOCISTEINE [Concomitant]
     Route: 048
     Dates: start: 20080324, end: 20080325

REACTIONS (2)
  - ERYTHEMA MULTIFORME [None]
  - LYMPHADENOPATHY [None]
